FAERS Safety Report 7779872-9 (Version None)
Quarter: 2011Q3

REPORT INFORMATION
  Report Type: 
  Country: None (occurrence: None)
  Receive Date: 20110927
  Receipt Date: 20101103
  Transmission Date: 20111222
  Serious: Yes (Other)
  Sender: FDA-Public Use
  Company Number: US-ASTRAZENECA-2010SE44441

PATIENT
  Age: 54 Year
  Sex: Male
  Weight: 95.3 kg

DRUGS (8)
  1. SEROQUEL [Suspect]
     Route: 048
     Dates: start: 20100901, end: 20100901
  2. VALIUM [Concomitant]
     Route: 065
  3. SEROQUEL [Suspect]
     Indication: INSOMNIA
     Route: 048
     Dates: start: 20080101
  4. SEROQUEL [Suspect]
     Indication: FLASHBACK
     Route: 048
     Dates: start: 20080101
  5. SEROQUEL [Suspect]
     Route: 048
     Dates: start: 20100901
  6. SEROQUEL [Suspect]
     Route: 048
     Dates: start: 20100901
  7. VIAGRA [Concomitant]
  8. SEROQUEL [Suspect]
     Route: 048
     Dates: start: 20100901, end: 20100901

REACTIONS (9)
  - NIGHTMARE [None]
  - SUICIDAL IDEATION [None]
  - TACHYPHRENIA [None]
  - ERECTILE DYSFUNCTION [None]
  - MEMORY IMPAIRMENT [None]
  - DRUG DOSE OMISSION [None]
  - INSOMNIA [None]
  - RESTLESSNESS [None]
  - AGITATION [None]
